FAERS Safety Report 9003317 (Version 1)
Quarter: 2013Q1

REPORT INFORMATION
  Report Type: Spontaneous
  Country: US (occurrence: US)
  Receive Date: 20130108
  Receipt Date: 20130108
  Transmission Date: 20140127
  Serious: No
  Sender: FDA-Public Use
  Company Number: US-ASTRAZENECA-1999UW03087

PATIENT
  Age: 89 Year
  Sex: Female
  Weight: 50.3 kg

DRUGS (3)
  1. TENORMIN [Suspect]
     Route: 048
     Dates: start: 19990705
  2. NEXIUM [Suspect]
     Indication: GASTROOESOPHAGEAL REFLUX DISEASE
     Route: 048
     Dates: start: 201212
  3. COUMADIN [Concomitant]

REACTIONS (3)
  - Chest discomfort [Not Recovered/Not Resolved]
  - Nausea [Not Recovered/Not Resolved]
  - Drug ineffective [Not Recovered/Not Resolved]
